FAERS Safety Report 9757203 (Version 1)
Quarter: 2013Q4

REPORT INFORMATION
  Report Type: Report from Study
  Country: IE (occurrence: IE)
  Receive Date: 20131213
  Receipt Date: 20131213
  Transmission Date: 20140711
  Serious: Yes (Hospitalization)
  Sender: FDA-Public Use
  Company Number: IE-ASTRAZENECA-2013SE90356

PATIENT
  Age: 4 Month
  Sex: Female

DRUGS (5)
  1. SYNAGIS [Suspect]
     Indication: PREMATURE BABY
     Route: 030
     Dates: end: 20131105
  2. SYNAGIS [Suspect]
     Indication: PREMATURE BABY
     Route: 030
  3. ABIDEC [Concomitant]
  4. GALFER [Concomitant]
  5. FOLIC ACID [Concomitant]

REACTIONS (4)
  - Viral infection [Recovered/Resolved]
  - Gastroenteritis [Recovering/Resolving]
  - Kidney infection [Recovering/Resolving]
  - Pyrexia [Not Recovered/Not Resolved]
